FAERS Safety Report 12417757 (Version 2)
Quarter: 2016Q2

REPORT INFORMATION
  Report Type: Spontaneous
  Country: FR (occurrence: FR)
  Receive Date: 20160530
  Receipt Date: 20160531
  Transmission Date: 20160815
  Serious: Yes (Death, Other)
  Sender: FDA-Public Use
  Company Number: FR-009507513-1605FRA013667

PATIENT
  Age: 55 Year
  Sex: Female
  Weight: 51 kg

DRUGS (5)
  1. SERESTA [Concomitant]
     Active Substance: OXAZEPAM
     Indication: ANXIETY
     Dosage: 10 MG, BID
  2. GRAZOPREVIR [Suspect]
     Active Substance: GRAZOPREVIR
     Indication: HEPATITIS C
     Dosage: 100 MG, QD
     Dates: start: 20140704, end: 20140926
  3. ELBASVIR [Suspect]
     Active Substance: ELBASVIR
     Indication: HEPATITIS C
     Dosage: 50 MG, QD
     Dates: start: 20140704, end: 20140926
  4. RIBAVIRIN. [Suspect]
     Active Substance: RIBAVIRIN
     Indication: HEPATITIS C
     Dosage: 200 MG, QID
     Dates: start: 20140704, end: 20140926
  5. SEROPLEX [Concomitant]
     Active Substance: ESCITALOPRAM OXALATE
     Indication: ANXIETY
     Dosage: 10 MG, QD

REACTIONS (1)
  - Death [Fatal]

NARRATIVE: CASE EVENT DATE: 20160219
